FAERS Safety Report 8072132-0 (Version None)
Quarter: 2012Q1

REPORT INFORMATION
  Report Type: 
  Country: None (occurrence: None)
  Receive Date: 20120124
  Receipt Date: 20120124
  Transmission Date: 20120608
  Serious: Yes (Life-Threatening, Hospitalization)
  Sender: FDA-Public Use
  Company Number: None

PATIENT
  Age: 60 Year
  Sex: Male
  Weight: 84.6 kg

DRUGS (2)
  1. CILOSTAZOL [Suspect]
     Indication: CARDIOVASCULAR DISORDER
     Dosage: 100 MG BID PO
     Route: 048
     Dates: start: 20101019, end: 20111231
  2. ASPIRIN [Suspect]
     Indication: SURGERY
     Dosage: MG EVERY DAY PO
     Route: 048
     Dates: start: 20010910, end: 20111231

REACTIONS (3)
  - GASTROINTESTINAL HAEMORRHAGE [None]
  - CHEST PAIN [None]
  - ANAEMIA [None]
